FAERS Safety Report 19468513 (Version 1)
Quarter: 2021Q2

REPORT INFORMATION
  Report Type: Spontaneous
  Country: IT (occurrence: IT)
  Receive Date: 20210628
  Receipt Date: 20210628
  Transmission Date: 20210717
  Serious: Yes (Hospitalization)
  Sender: FDA-Public Use
  Company Number: IT-TASMAN PHARMA, INC.-2021TSM00042

PATIENT
  Age: 19 Year
  Sex: Female

DRUGS (5)
  1. CLOZAPINE. [Suspect]
     Active Substance: CLOZAPINE
     Indication: SCHIZOPHRENIA
     Dosage: 200 MG
     Route: 065
  2. CLOZAPINE. [Suspect]
     Active Substance: CLOZAPINE
     Dosage: AUGMENTED UP TO 175 MG/DIE
     Route: 065
     Dates: start: 201908
  3. CLOZAPINE. [Suspect]
     Active Substance: CLOZAPINE
     Dosage: 125 MG
     Route: 065
     Dates: start: 201811
  4. OMEPRAZOLE. [Concomitant]
     Active Substance: OMEPRAZOLE
     Dosage: 40 MG/DIE
     Route: 065
  5. CLOZAPINE. [Suspect]
     Active Substance: CLOZAPINE
     Dosage: TITRATION UP TO 125 MG/DIE IN A MONTH LAPSE
     Route: 065
     Dates: start: 201908

REACTIONS (2)
  - Gastrooesophageal reflux disease [Recovering/Resolving]
  - Merycism [Recovering/Resolving]

NARRATIVE: CASE EVENT DATE: 201811
